FAERS Safety Report 18054440 (Version 1)
Quarter: 2020Q3

REPORT INFORMATION
  Report Type: Spontaneous
  Country: US (occurrence: US)
  Receive Date: 20200721
  Receipt Date: 20200721
  Transmission Date: 20201103
  Serious: Yes (Hospitalization)
  Sender: FDA-Public Use
  Company Number: None

PATIENT
  Age: 87 Year
  Sex: Female

DRUGS (1)
  1. IBRANCE [Suspect]
     Active Substance: PALBOCICLIB
     Indication: BREAST CANCER FEMALE
     Dosage: ?          OTHER ROUTE:ORAL 21DAYS?
     Dates: start: 20190828

REACTIONS (2)
  - Hospitalisation [None]
  - Product use issue [None]

NARRATIVE: CASE EVENT DATE: 20200721
